FAERS Safety Report 11884585 (Version 1)
Quarter: 2015Q4

REPORT INFORMATION
  Report Type: Spontaneous
  Country: US (occurrence: None)
  Receive Date: 20151231
  Receipt Date: 20151231
  Transmission Date: 20160305
  Serious: Yes (Other)
  Sender: FDA-Public Use
  Company Number: None

PATIENT
  Age: 55 Year
  Sex: Male
  Weight: 101.61 kg

DRUGS (11)
  1. ASA [Concomitant]
     Active Substance: ASPIRIN
  2. NORCO [Concomitant]
     Active Substance: ACETAMINOPHEN\HYDROCODONE BITARTRATE
  3. LOSARTAN. [Concomitant]
     Active Substance: LOSARTAN
  4. ALEVE [Concomitant]
     Active Substance: NAPROXEN SODIUM
  5. LEVOFLOXACIN 500 MG [Suspect]
     Active Substance: LEVOFLOXACIN
     Indication: EPIDIDYMITIS
     Route: 048
     Dates: start: 20150918, end: 20150922
  6. CHLORTHALIDONE. [Concomitant]
     Active Substance: CHLORTHALIDONE
  7. MELATONIN [Concomitant]
     Active Substance: MELATONIN
  8. ALLOPURINOL. [Concomitant]
     Active Substance: ALLOPURINOL
  9. TRAMADOL. [Concomitant]
     Active Substance: TRAMADOL
  10. MVI [Concomitant]
     Active Substance: VITAMINS
  11. CPAP [Concomitant]
     Active Substance: DEVICE

REACTIONS (6)
  - Arthralgia [None]
  - Thirst [None]
  - Tendon pain [None]
  - Pyrexia [None]
  - Asthenia [None]
  - Fatigue [None]

NARRATIVE: CASE EVENT DATE: 20150923
